FAERS Safety Report 18900631 (Version 1)
Quarter: 2021Q1

REPORT INFORMATION
  Report Type: Spontaneous
  Country: IN (occurrence: CN)
  Receive Date: 20210216
  Receipt Date: 20210216
  Transmission Date: 20210420
  Serious: Yes (Other)
  Sender: FDA-Public Use
  Company Number: CN-ELI_LILLY_AND_COMPANY-CN202102006498

PATIENT
  Age: 54 Year
  Sex: Male

DRUGS (2)
  1. PEMBROLIZUMAB. [Suspect]
     Active Substance: PEMBROLIZUMAB
     Indication: THYMUS DISORDER
     Dosage: UNK, CYCLICAL
     Route: 065
     Dates: start: 201912
  2. GEMCITABINE HYDROCHLORIDE. [Suspect]
     Active Substance: GEMCITABINE HYDROCHLORIDE
     Indication: SQUAMOUS CELL CARCINOMA
     Dosage: UNK UNK, CYCLICAL
     Route: 065
     Dates: start: 201912

REACTIONS (3)
  - Rash [Recovering/Resolving]
  - Off label use [Unknown]
  - Pruritus [Recovering/Resolving]
